FAERS Safety Report 7629815-3 (Version None)
Quarter: 2011Q3

REPORT INFORMATION
  Report Type: 
  Country: None (occurrence: None)
  Receive Date: 20110722
  Receipt Date: 20110717
  Transmission Date: 20111222
  Serious: Yes (Death)
  Sender: FDA-Public Use
  Company Number: DE-GENZYME-FLUD-1001214

PATIENT
  Age: 10 Year
  Sex: Male

DRUGS (11)
  1. ANTI-THYMOCYTE GLOBULIN NOS [Suspect]
     Indication: STEM CELL TRANSPLANT
  2. INDIUM (111 IN) [Suspect]
     Indication: STEM CELL TRANSPLANT
  3. FLUDARA [Suspect]
     Indication: STEM CELL TRANSPLANT
  4. MELPHALAN HYDROCHLORIDE [Suspect]
     Indication: ACUTE LYMPHOCYTIC LEUKAEMIA
     Dosage: 140 MG/M2, UNK
     Route: 065
  5. FLUDARA [Suspect]
     Indication: ACUTE LYMPHOCYTIC LEUKAEMIA
     Dosage: 160 MG/M2, UNK
     Route: 065
  6. MELPHALAN HYDROCHLORIDE [Suspect]
     Indication: STEM CELL TRANSPLANT
  7. INDIUM (111 IN) [Suspect]
     Indication: ACUTE LYMPHOCYTIC LEUKAEMIA
     Dosage: 71 +/- 28 MBQ
     Route: 042
  8. YTTRIUM (90 Y) [Suspect]
     Indication: ACUTE LYMPHOCYTIC LEUKAEMIA
     Dosage: UNK
     Route: 065
  9. YTTRIUM (90 Y) [Suspect]
     Indication: STEM CELL TRANSPLANT
  10. ANTI-THYMOCYTE GLOBULIN NOS [Suspect]
     Indication: ACUTE LYMPHOCYTIC LEUKAEMIA
     Dosage: UNK
     Route: 065
  11. CYCLOSPORINE [Concomitant]
     Indication: PROPHYLAXIS AGAINST GRAFT VERSUS HOST DISEASE

REACTIONS (1)
  - ACUTE LYMPHOCYTIC LEUKAEMIA RECURRENT [None]
